FAERS Safety Report 9038545 (Version 1)
Quarter: 2013Q1

REPORT INFORMATION
  Report Type: Spontaneous
  Country: CA (occurrence: CA)
  Receive Date: 20130129
  Receipt Date: 20130129
  Transmission Date: 20140127
  Serious: Yes (Hospitalization)
  Sender: FDA-Public Use
  Company Number: CA-B.I. PHARMACEUTICALS,INC./RIDGEFIELD-2013-CN-00124CN

PATIENT
  Age: 71 Year
  Sex: Male
  Weight: 105 kg

DRUGS (9)
  1. PRADAX [Suspect]
     Dosage: 110 MG
     Route: 048
  2. ACETAMINOPHEN [Concomitant]
  3. ASCORBIC ACID (VITAMIN C) [Concomitant]
  4. CHOLECALCIFEROL [Concomitant]
  5. CYANOCOBALAMIN [Concomitant]
  6. EZETROL [Concomitant]
  7. METOPROLOL [Concomitant]
  8. NIFEDIPINE [Concomitant]
  9. ROSUVASTATIN [Concomitant]

REACTIONS (2)
  - Haematuria [Recovered/Resolved]
  - Urinary tract infection [Recovered/Resolved]
